FAERS Safety Report 8797239 (Version 1)
Quarter: 2012Q4

REPORT INFORMATION
  Report Type: Report from Study
  Country: US (occurrence: US)
  Receive Date: 20120919
  Receipt Date: 20120919
  Transmission Date: 20130627
  Serious: Yes (Hospitalization)
  Sender: FDA-Public Use
  Company Number: US-JNJFOC-20120906690

PATIENT
  Age: 10 Year
  Sex: Female
  Weight: 34 kg

DRUGS (8)
  1. REMICADE [Suspect]
     Indication: CROHN^S DISEASE
     Route: 042
  2. HUMIRA [Suspect]
     Indication: PRODUCT USED FOR UNKNOWN INDICATION
     Dates: start: 20080505
  3. 5-ASA [Concomitant]
  4. METHOTREXATE [Concomitant]
  5. PROBIOTICS [Concomitant]
  6. FOLIC ACID [Concomitant]
  7. MULTIVIT [Concomitant]
  8. LANSOPRAZOLE [Concomitant]

REACTIONS (1)
  - Crohn^s disease [Recovered/Resolved]
